FAERS Safety Report 7815894-7 (Version None)
Quarter: 2011Q4

REPORT INFORMATION
  Report Type: 
  Country: None (occurrence: None)
  Receive Date: 20111014
  Receipt Date: 20111005
  Transmission Date: 20120403
  Serious: Yes (Other)
  Sender: FDA-Public Use
  Company Number: US-SANOFI-AVENTIS-2011SA063057

PATIENT
  Age: 60 Year
  Sex: Female

DRUGS (4)
  1. APIDRA [Suspect]
     Route: 065
  2. SOLOSTAR [Suspect]
  3. SOLOSTAR [Suspect]
  4. LANTUS [Suspect]
     Dosage: DOSE:55 UNIT(S)
     Route: 058

REACTIONS (6)
  - MALAISE [None]
  - WRONG DRUG ADMINISTERED [None]
  - VISUAL IMPAIRMENT [None]
  - NAUSEA [None]
  - BLOOD GLUCOSE INCREASED [None]
  - CONFUSIONAL STATE [None]
